FAERS Safety Report 5170283-1 (Version None)
Quarter: 2006Q4

REPORT INFORMATION
  Report Type: 
  Country: None (occurrence: None)
  Receive Date: 20061212
  Receipt Date: 20061201
  Transmission Date: 20070319
  Serious: Yes (Hospitalization)
  Sender: FDA-Public Use
  Company Number: US-JNJFOC-20061201063

PATIENT
  Weight: 2.9 kg

DRUGS (2)
  1. TOPAMAX [Suspect]
     Indication: DRUG EXPOSURE DURING PREGNANCY
  2. TEGRETOL [Concomitant]
     Route: 064

REACTIONS (4)
  - CONVULSION [None]
  - FEELING JITTERY [None]
  - HYPOCALCAEMIA [None]
  - MUSCLE TWITCHING [None]
